FAERS Safety Report 15504033 (Version 3)
Quarter: 2018Q4

REPORT INFORMATION
  Report Type: Report from Study
  Country: US (occurrence: US)
  Receive Date: 20181016
  Receipt Date: 20181026
  Transmission Date: 20190205
  Serious: Yes (Other)
  Sender: FDA-Public Use
  Company Number: US-AMGEN INC.-USASP2018131418

PATIENT
  Age: 55 Year
  Sex: Female
  Weight: 77.98 kg

DRUGS (3)
  1. PROPRANOLOL HCL [Concomitant]
     Active Substance: PROPRANOLOL HYDROCHLORIDE
     Indication: BLOOD PRESSURE INCREASED
  2. AIMOVIG [Suspect]
     Active Substance: ERENUMAB-AOOE
     Indication: MIGRAINE
     Dosage: 70 MG, QMO
     Route: 058
     Dates: start: 20180817, end: 20180918
  3. PROPRANOLOL HCL [Concomitant]
     Active Substance: PROPRANOLOL HYDROCHLORIDE
     Indication: MIGRAINE
     Dosage: 160 MG, QD
     Dates: start: 20180720

REACTIONS (14)
  - Injection site haemorrhage [Unknown]
  - Heart rate irregular [Recovered/Resolved]
  - Fear [Not Recovered/Not Resolved]
  - Palpitations [Unknown]
  - Wrong technique in product usage process [Unknown]
  - Nasopharyngitis [Recovered/Resolved]
  - Injection site pain [Recovered/Resolved]
  - Product storage error [Unknown]
  - Poor quality product administered [Unknown]
  - Panic reaction [Not Recovered/Not Resolved]
  - Injection site swelling [Unknown]
  - Peripheral swelling [Recovered/Resolved]
  - Renal pain [Recovered/Resolved]
  - Nervousness [Unknown]

NARRATIVE: CASE EVENT DATE: 20180823
